FAERS Safety Report 4683507-1 (Version None)
Quarter: 2005Q2

REPORT INFORMATION
  Report Type: 
  Country: None (occurrence: None)
  Receive Date: 20050606
  Receipt Date: 20050606
  Transmission Date: 20051028
  Serious: Yes (Other)
  Sender: FDA-Public Use
  Company Number: None

PATIENT
  Age: 5 Year
  Sex: Male
  Weight: 21.3191 kg

DRUGS (2)
  1. TYLENOL     80MG    MCNEIL [Suspect]
     Indication: HEADACHE
     Dosage: 3 PILLS    4-6 HRS   ORAL
     Route: 048
  2. TYLENOL     80MG    MCNEIL [Suspect]
     Indication: PYREXIA
     Dosage: 3 PILLS    4-6 HRS   ORAL
     Route: 048

REACTIONS (2)
  - PHARMACEUTICAL PRODUCT COMPLAINT [None]
  - PRURITUS [None]
